FAERS Safety Report 6379695-1 (Version None)
Quarter: 2009Q3

REPORT INFORMATION
  Report Type: 
  Country: None (occurrence: None)
  Receive Date: 20090928
  Receipt Date: 20090923
  Transmission Date: 20100115
  Serious: Yes (Hospitalization)
  Sender: FDA-Public Use
  Company Number: FR-WYE-G04489609

PATIENT
  Sex: Female

DRUGS (3)
  1. ADVIL [Suspect]
     Dosage: 2 TO 3 TABLETS TOTAL DAILY
     Route: 048
     Dates: end: 20090801
  2. AUGMENTIN [Suspect]
     Dosage: UNKNOWN
     Route: 048
  3. PARACETAMOL [Suspect]
     Dosage: 1 G/DAY AS REQUIRED FROM UNKNOWN DATE TO 13-AUG-2009; OVER 4 G/DAY FROM 14-AUG-2009 TO UNKNOWN DATE
     Route: 048

REACTIONS (9)
  - ABDOMINAL DISCOMFORT [None]
  - ALANINE AMINOTRANSFERASE INCREASED [None]
  - ASPARTATE AMINOTRANSFERASE INCREASED [None]
  - ASTHENIA [None]
  - BLOOD ALKALINE PHOSPHATASE INCREASED [None]
  - GAMMA-GLUTAMYLTRANSFERASE INCREASED [None]
  - HEPATOSPLENOMEGALY [None]
  - LEUKOPENIA [None]
  - OVERDOSE [None]
